FAERS Safety Report 11762510 (Version 1)
Quarter: 2015Q4

REPORT INFORMATION
  Report Type: Spontaneous
  Country: US (occurrence: US)
  Receive Date: 20151120
  Receipt Date: 20151120
  Transmission Date: 20160304
  Serious: No
  Sender: FDA-Public Use
  Company Number: US-ASTRAZENECA-2015SF09608

PATIENT
  Sex: Male
  Weight: 47.2 kg

DRUGS (1)
  1. TUDORZA PRESSAIR [Suspect]
     Active Substance: ACLIDINIUM BROMIDE
     Indication: CHRONIC OBSTRUCTIVE PULMONARY DISEASE
     Route: 055
     Dates: start: 2015

REACTIONS (6)
  - Underdose [Unknown]
  - Weight gain poor [Unknown]
  - Dyspnoea [Unknown]
  - Lung disorder [Unknown]
  - Abdominal pain upper [Unknown]
  - Device malfunction [Unknown]
